FAERS Safety Report 10080330 (Version 2)
Quarter: 2014Q2

REPORT INFORMATION
  Report Type: Spontaneous
  Country: US (occurrence: US)
  Receive Date: 20140415
  Receipt Date: 20140526
  Transmission Date: 20141212
  Serious: Yes (Hospitalization, Other)
  Sender: FDA-Public Use
  Company Number: US-AMGEN INC.-USASP2014026384

PATIENT
  Age: 54 Year
  Sex: Female

DRUGS (3)
  1. ENBREL [Suspect]
     Indication: PSORIATIC ARTHROPATHY
     Dosage: 50 MG, QWK
     Route: 065
     Dates: start: 20110101
  2. ENBREL [Suspect]
     Indication: RHEUMATOID ARTHRITIS
  3. METHOTREXATE [Concomitant]
     Dosage: UNK

REACTIONS (4)
  - Gait disturbance [Recovered/Resolved]
  - Meniscus injury [Recovered/Resolved]
  - Osteoarthritis [Recovered/Resolved]
  - Arthralgia [Not Recovered/Not Resolved]
